FAERS Safety Report 11629442 (Version 1)
Quarter: 2015Q4

REPORT INFORMATION
  Report Type: Spontaneous
  Country: US (occurrence: None)
  Receive Date: 20151013
  Receipt Date: 20151013
  Transmission Date: 20160304
  Serious: Yes (Disabling)
  Sender: FDA-Public Use
  Company Number: None

PATIENT
  Age: 43 Year
  Sex: Female
  Weight: 88.91 kg

DRUGS (3)
  1. ARMOUR THYROID [Suspect]
     Active Substance: THYROID, PORCINE\THYROID, UNSPECIFIED
     Indication: HYPOTHYROIDISM
     Route: 048
     Dates: start: 20150919, end: 20151009
  2. NATURE-THROID [Concomitant]
     Active Substance: THYROID, PORCINE
  3. WOMENS MULTIVITAMIN [Concomitant]

REACTIONS (4)
  - Parosmia [None]
  - Dysgeusia [None]
  - Product substitution issue [None]
  - Feeling abnormal [None]

NARRATIVE: CASE EVENT DATE: 20151012
